FAERS Safety Report 14315180 (Version 1)
Quarter: 2017Q4

REPORT INFORMATION
  Report Type: Spontaneous
  Country: AU (occurrence: AU)
  Receive Date: 20171221
  Receipt Date: 20171221
  Transmission Date: 20180321
  Serious: Yes (Other)
  Sender: FDA-Public Use
  Company Number: AU-SA-2017SA248997

PATIENT
  Sex: Female

DRUGS (9)
  1. FISH OIL [Suspect]
     Active Substance: FISH OIL
     Route: 065
  2. ZOLOFT [Suspect]
     Active Substance: SERTRALINE HYDROCHLORIDE
     Route: 065
  3. MOBIC [Suspect]
     Active Substance: MELOXICAM
     Route: 065
  4. PANADOL [Suspect]
     Active Substance: ACETAMINOPHEN
     Route: 065
  5. SYMBICORT [Suspect]
     Active Substance: BUDESONIDE\FORMOTEROL FUMARATE DIHYDRATE
     Route: 065
  6. ERGOCALCIFEROL. [Suspect]
     Active Substance: ERGOCALCIFEROL
     Route: 065
  7. LIPITOR [Suspect]
     Active Substance: ATORVASTATIN CALCIUM
     Route: 065
  8. STELAZINE [Suspect]
     Active Substance: TRIFLUOPERAZINE HYDROCHLORIDE
     Route: 065
  9. KARVEA [Suspect]
     Active Substance: IRBESARTAN
     Route: 048

REACTIONS (7)
  - Decreased appetite [Unknown]
  - Neutropenia [Unknown]
  - Viral upper respiratory tract infection [Unknown]
  - Alopecia [Unknown]
  - Vulvovaginal candidiasis [Unknown]
  - Pruritus [Unknown]
  - Weight decreased [Unknown]
